FAERS Safety Report 9080274 (Version 1)
Quarter: 2013Q1

REPORT INFORMATION
  Report Type: Spontaneous
  Country: AU (occurrence: AU)
  Receive Date: 20130218
  Receipt Date: 20130218
  Transmission Date: 20140127
  Serious: Yes (Other)
  Sender: FDA-Public Use
  Company Number: PHHY2013AU013965

PATIENT
  Age: 2 Year
  Sex: Male

DRUGS (1)
  1. VOXAM [Suspect]
     Dosage: 1 DF, UNK
     Route: 048
     Dates: start: 20120212, end: 20130212

REACTIONS (1)
  - Accidental exposure to product by child [Unknown]
